FAERS Safety Report 14658586 (Version 3)
Quarter: 2018Q2

REPORT INFORMATION
  Report Type: Spontaneous
  Country: US (occurrence: US)
  Receive Date: 20180320
  Receipt Date: 20180423
  Transmission Date: 20180711
  Serious: No
  Sender: FDA-Public Use
  Company Number: US-PFIZER INC-2018114833

PATIENT
  Age: 16 Year
  Sex: Female

DRUGS (2)
  1. EUCRISA [Suspect]
     Active Substance: CRISABOROLE
     Indication: RASH
     Dosage: UNK, 1X/DAY
     Dates: start: 20180120
  2. EUCRISA [Suspect]
     Active Substance: CRISABOROLE
     Indication: DRY SKIN
     Dosage: UNK, 1X/DAY
     Dates: start: 20180131, end: 201803

REACTIONS (2)
  - Drug ineffective [Recovered/Resolved]
  - Pruritus [Recovered/Resolved]

NARRATIVE: CASE EVENT DATE: 20180120
